FAERS Safety Report 10255886 (Version 2)
Quarter: 2014Q2

REPORT INFORMATION
  Report Type: Report from Study
  Country: JP (occurrence: JP)
  Receive Date: 20140624
  Receipt Date: 20140626
  Transmission Date: 20141212
  Serious: Yes (Hospitalization)
  Sender: FDA-Public Use
  Company Number: JP-BRISTOL-MYERS SQUIBB COMPANY-21088489

PATIENT
  Age: 19 Year
  Sex: Male

DRUGS (2)
  1. ARIPIPRAZOLE [Suspect]
     Indication: AUTISM
     Dosage: 13NOV19NOV-1MG,20NOV23NOV-3,27NOV3DEC-6,4DEC1210DEC-9?11-27DEC-12,28-121DEC13-15MG
     Route: 048
     Dates: start: 20121113, end: 20140613
  2. LORAZEPAM [Concomitant]
     Route: 065
     Dates: start: 20140401

REACTIONS (1)
  - Autism [Unknown]
